FAERS Safety Report 8582724 (Version 2)
Quarter: 2012Q4

REPORT INFORMATION
  Report Type: 
  Country: FR (occurrence: FR)
  Receive Date: 20120529
  Receipt Date: 20121010
  Transmission Date: 20130627
  Serious: Yes (Hospitalization, Other)
  Sender: FDA-Public Use
  Company Number: FR-PFIZER INC-2012126026

PATIENT
  Age: 49 Year
  Sex: Female

DRUGS (4)
  1. SALAZOPYRINE [Suspect]
     Indication: ANKYLOSING SPONDYLITIS
     Dosage: 1 DF, 1x/day
     Dates: start: 20111001
  2. SALAZOPYRINE [Suspect]
     Dosage: 1 DF, 2x/day
     Dates: start: 20121008
  3. SALAZOPYRINE [Suspect]
     Dosage: UNK
  4. SALAZOPYRINE [Suspect]
     Dosage: 2 DF, 2x/day

REACTIONS (11)
  - Lung infection [Unknown]
  - Pericardial effusion [Recovered/Resolved]
  - Dyspnoea [Recovered/Resolved]
  - Malaise [Recovered/Resolved]
  - Tachycardia [Recovered/Resolved]
  - Chest pain [Recovered/Resolved]
  - Gait disturbance [Recovered/Resolved]
  - Weight decreased [Unknown]
  - Platelet count abnormal [Unknown]
  - White blood cell count abnormal [Unknown]
  - C-reactive protein increased [Unknown]
